FAERS Safety Report 25550758 (Version 1)
Quarter: 2025Q3

REPORT INFORMATION
  Report Type: Spontaneous
  Country: US (occurrence: US)
  Receive Date: 20250714
  Receipt Date: 20250714
  Transmission Date: 20251021
  Serious: Yes (Death)
  Sender: COHERUS
  Company Number: US-COHERUS BIOSCIENCES, INC-2025-COH-US000618

PATIENT

DRUGS (5)
  1. UDENYCA [Suspect]
     Active Substance: PEGFILGRASTIM-CBQV
     Indication: Pancreatic carcinoma
     Dosage: UNK, ONE INJECTION EVERY 28 DAYS
     Route: 058
     Dates: start: 20250321, end: 20250321
  2. UDENYCA [Suspect]
     Active Substance: PEGFILGRASTIM-CBQV
     Dosage: UNK, ONE INJECTION EVERY 28 DAYS
     Route: 058
     Dates: start: 20250423, end: 20250423
  3. UDENYCA [Suspect]
     Active Substance: PEGFILGRASTIM-CBQV
     Dosage: UNK, ONE INJECTION EVERY 28 DAYS
     Route: 058
     Dates: start: 20250521, end: 20250521
  4. CINVANTI [Concomitant]
     Active Substance: APREPITANT
  5. ONIVYDE [Concomitant]
     Active Substance: IRINOTECAN HYDROCHLORIDE

REACTIONS (1)
  - Pancreatic carcinoma [Fatal]

NARRATIVE: CASE EVENT DATE: 20250626
